FAERS Safety Report 5652065-7 (Version None)
Quarter: 2008Q1

REPORT INFORMATION
  Report Type: 
  Country: None (occurrence: None)
  Receive Date: 20080305
  Receipt Date: 20080225
  Transmission Date: 20080703
  Serious: Yes (Life-Threatening, Hospitalization, Disabling)
  Sender: FDA-Public Use
  Company Number: DK-PFIZER INC-2008018552

PATIENT
  Sex: Female

DRUGS (4)
  1. SALAZOPYRIN [Suspect]
     Indication: RHEUMATOID ARTHRITIS
     Route: 048
     Dates: start: 20080101, end: 20080201
  2. SELO-ZOK [Concomitant]
     Route: 048
  3. SIMVASTATIN [Concomitant]
  4. ASPIRIN [Concomitant]
     Route: 048

REACTIONS (3)
  - AGRANULOCYTOSIS [None]
  - PHARYNGOLARYNGEAL PAIN [None]
  - TONSILLITIS [None]
